FAERS Safety Report 6404382-0 (Version None)
Quarter: 2009Q4

REPORT INFORMATION
  Report Type: 
  Country: None (occurrence: None)
  Receive Date: 20091016
  Receipt Date: 20091005
  Transmission Date: 20100525
  Serious: Yes (Death)
  Sender: FDA-Public Use
  Company Number: FR-GENENTECH-292123

PATIENT

DRUGS (2)
  1. MABTHERA [Suspect]
     Indication: HEPATITIS C
     Route: 042
  2. RIBAVIRIN [Suspect]
     Indication: HEPATITIS C
     Dosage: 600 MG, UNK
     Route: 048

REACTIONS (8)
  - DEATH [None]
  - GENERAL PHYSICAL HEALTH DETERIORATION [None]
  - HEPATIC NEOPLASM MALIGNANT [None]
  - HERPES ZOSTER [None]
  - NEUTROPENIA [None]
  - PSORIASIS [None]
  - SERUM SICKNESS [None]
  - VASCULITIS [None]
